FAERS Safety Report 7918032-5 (Version None)
Quarter: 2011Q4

REPORT INFORMATION
  Report Type: 
  Country: None (occurrence: None)
  Receive Date: 20111116
  Receipt Date: 20111115
  Transmission Date: 20120403
  Serious: Yes (Other)
  Sender: FDA-Public Use
  Company Number: US-MERCK-1105USA01697

PATIENT
  Age: 83 Year
  Sex: Female

DRUGS (2)
  1. FOSAMAX [Suspect]
     Indication: BONE DENSITY DECREASED
     Route: 048
     Dates: start: 20020101, end: 20101001
  2. FOSAMAX [Suspect]
     Route: 065

REACTIONS (3)
  - HIP FRACTURE [None]
  - FEMUR FRACTURE [None]
  - FALL [None]
